FAERS Safety Report 4976279-4 (Version None)
Quarter: 2006Q2

REPORT INFORMATION
  Report Type: 
  Country: None (occurrence: None)
  Receive Date: 20060412
  Receipt Date: 20060405
  Transmission Date: 20061013
  Serious: Yes (Death, Life-Threatening, Hospitalization)
  Sender: FDA-Public Use
  Company Number: 056-C5013-06030587

PATIENT
  Age: 65 Year
  Sex: Female
  Weight: 55 kg

DRUGS (2)
  1. REVLIMID [Suspect]
     Indication: MYELODYSPLASTIC SYNDROME
     Dosage: 10 MG, OD, ORAL
     Route: 048
     Dates: start: 20060215, end: 20060314
  2. DESFERAL (DEFEROXAMINE MESILATE) [Concomitant]

REACTIONS (23)
  - ACUTE PROMYELOCYTIC LEUKAEMIA [None]
  - ANOREXIA [None]
  - AORTIC THROMBOSIS [None]
  - AREFLEXIA [None]
  - CARDIAC DISORDER [None]
  - CERUMEN IMPACTION [None]
  - CONFUSIONAL STATE [None]
  - DISORIENTATION [None]
  - EAR PAIN [None]
  - GENERAL PHYSICAL HEALTH DETERIORATION [None]
  - HEADACHE [None]
  - HYPOACUSIS [None]
  - JUGULAR VEIN THROMBOSIS [None]
  - LOCALISED OEDEMA [None]
  - LYMPHADENOPATHY [None]
  - NAUSEA [None]
  - ORAL FUNGAL INFECTION [None]
  - PAIN [None]
  - PULMONARY ARTERY THROMBOSIS [None]
  - PULMONARY EMBOLISM [None]
  - PYELONEPHRITIS [None]
  - REFRACTORY ANAEMIA [None]
  - WEIGHT DECREASED [None]
